FAERS Safety Report 9314894 (Version 2)
Quarter: 2013Q4

REPORT INFORMATION
  Report Type: Spontaneous
  Country: US (occurrence: US)
  Receive Date: 20130529
  Receipt Date: 20131023
  Transmission Date: 20140711
  Serious: Yes (Hospitalization, Disabling, Other)
  Sender: FDA-Public Use
  Company Number: US-009507513-1206USA04849

PATIENT
  Sex: Female
  Weight: 70.7 kg

DRUGS (7)
  1. FOSAMAX [Suspect]
     Indication: OSTEOPENIA
     Dosage: 70 MG, QW
     Route: 048
     Dates: start: 200205, end: 200803
  2. FOSAMAX [Suspect]
     Indication: OSTEOPOROSIS
     Route: 048
  3. ALENDRONATE SODIUM [Suspect]
     Indication: OSTEOPENIA
     Dosage: 70 MG, UNK
     Route: 048
     Dates: start: 200804, end: 201006
  4. VITAMINS (UNSPECIFIED) [Concomitant]
     Dosage: 1 DF, QD
     Dates: start: 1998
  5. CALCIUM (UNSPECIFIED) [Concomitant]
     Indication: OSTEOPENIA
     Dosage: 500 IU, QD
     Dates: start: 1998
  6. ASCORBIC ACID [Concomitant]
     Dosage: 500 MG, QD
     Dates: start: 1980
  7. VITAMIN D (UNSPECIFIED) [Concomitant]
     Indication: OSTEOPENIA
     Dosage: 1000 IU, QD

REACTIONS (35)
  - Femur fracture [Unknown]
  - Femur fracture [Not Recovered/Not Resolved]
  - Open reduction of fracture [Unknown]
  - Corneal transplant [Unknown]
  - Open reduction of fracture [Unknown]
  - Bone density decreased [Unknown]
  - Tooth infection [Unknown]
  - Tooth loss [Unknown]
  - Tooth loss [Unknown]
  - Foot fracture [Unknown]
  - Fluid retention [Unknown]
  - Impaired healing [Unknown]
  - Osteoarthritis [Unknown]
  - Gouty arthritis [Unknown]
  - Spinal osteoarthritis [Unknown]
  - Osteoarthritis [Unknown]
  - Hyperlipidaemia [Unknown]
  - Pulmonary hypertension [Unknown]
  - Seborrhoeic dermatitis [Unknown]
  - Keratoconus [Unknown]
  - Sleep apnoea syndrome [Unknown]
  - Intraocular lens implant [Unknown]
  - Cataract [Unknown]
  - Rosacea [Unknown]
  - Keratoplasty [Unknown]
  - Lens extraction [Unknown]
  - Corneal transplant [Unknown]
  - Vitrectomy [Unknown]
  - Lens extraction [Unknown]
  - Wound [Unknown]
  - Wound [Unknown]
  - Medical device removal [Unknown]
  - Blood glucose decreased [Unknown]
  - Gastroenteritis [Unknown]
  - Adrenal insufficiency [Unknown]
